FAERS Safety Report 4763931-9 (Version None)
Quarter: 2005Q3

REPORT INFORMATION
  Report Type: 
  Country: None (occurrence: None)
  Receive Date: 20050906
  Receipt Date: 20050823
  Transmission Date: 20060218
  Serious: Yes (Other)
  Sender: FDA-Public Use
  Company Number: S05-USA-03944-01

PATIENT
  Age: 40 Year
  Sex: Female

DRUGS (2)
  1. LEXAPRO [Suspect]
     Dosage: 10 MG QD PO
     Route: 048
     Dates: start: 20050101, end: 20050101
  2. BENADRYL [Suspect]
     Indication: SLEEP DISORDER
     Dosage: 50 MG QD
     Dates: start: 20050101, end: 20050101

REACTIONS (2)
  - ANGLE CLOSURE GLAUCOMA [None]
  - THERAPY NON-RESPONDER [None]
